FAERS Safety Report 7373763-3 (Version None)
Quarter: 2011Q1

REPORT INFORMATION
  Report Type: 
  Country: None (occurrence: None)
  Receive Date: 20110325
  Receipt Date: 20110104
  Transmission Date: 20110831
  Serious: No
  Sender: FDA-Public Use
  Company Number: US-MYLANLABS-2011S1000369

PATIENT
  Age: 65 Year
  Sex: Male

DRUGS (7)
  1. TRIAMTERENE [Concomitant]
     Indication: BLOOD PRESSURE
  2. ALBUTEROL SULFATE [Suspect]
     Indication: ASTHMA
  3. HERBAL [Concomitant]
  4. ALBUTEROL SULFATE [Suspect]
     Indication: ASTHMA
     Route: 055
     Dates: start: 20000101
  5. M.V.I. [Concomitant]
  6. IPRATROPIUM BROMIDE [Concomitant]
     Indication: ASTHMA
  7. DILTIAZEM HCL [Concomitant]

REACTIONS (2)
  - ARRHYTHMIA [None]
  - TACHYCARDIA [None]
